FAERS Safety Report 25703201 (Version 3)
Quarter: 2025Q3

REPORT INFORMATION
  Report Type: Spontaneous
  Country: GB (occurrence: GB)
  Receive Date: 20250820
  Receipt Date: 20250917
  Transmission Date: 20251021
  Serious: Yes (Other)
  Sender: IPSEN BIOPHARMACEUTICALS, INC.
  Company Number: GB-ADVANZ PHARMA-202311010398

PATIENT
  Sex: Female

DRUGS (7)
  1. LANREOTIDE ACETATE [Suspect]
     Active Substance: LANREOTIDE ACETATE
     Indication: Neuroendocrine tumour
     Dosage: DEEP SUBCUTANEOUS
     Route: 058
     Dates: start: 20231010
  2. LANREOTIDE ACETATE [Suspect]
     Active Substance: LANREOTIDE ACETATE
     Dosage: DEEP SUBCUTANEOUS
     Route: 058
  3. LANREOTIDE ACETATE [Suspect]
     Active Substance: LANREOTIDE ACETATE
     Dosage: DEEP SUBCUTANEOUS
     Route: 058
  4. LANREOTIDE ACETATE [Suspect]
     Active Substance: LANREOTIDE ACETATE
     Dosage: DEEP SUBCUTANEOUS, INTO THE LEFT UPPER OUTER BUTTOCK
     Route: 058
     Dates: start: 20250217
  5. LANREOTIDE ACETATE [Suspect]
     Active Substance: LANREOTIDE ACETATE
     Dosage: DEEP SUBCUTANEOUS, INTO THE LEFT UPPER OUTER BUTTOCK
     Route: 058
  6. LANREOTIDE ACETATE [Suspect]
     Active Substance: LANREOTIDE ACETATE
     Dosage: DEEP SUBCUTANEOUS, INTO THE LEFT UPPER OUTER BUTTOCK
     Route: 058
  7. LANREOTIDE ACETATE [Suspect]
     Active Substance: LANREOTIDE ACETATE
     Dosage: 120 MG, EVERY 28 DAYS (DEEP SUBCUTANEOUS, INTO THE LEFT UPPER OUTER BUTTOCK)
     Route: 058

REACTIONS (29)
  - Lower respiratory tract infection [Not Recovered/Not Resolved]
  - Diverticulitis [Unknown]
  - Rectal haemorrhage [Unknown]
  - Hepatic cancer [Unknown]
  - Treatment delayed [Unknown]
  - Product supply issue [Unknown]
  - Scab [Unknown]
  - Bleeding varicose vein [Recovered/Resolved]
  - Scratch [Unknown]
  - Anal incontinence [Unknown]
  - Accident [Unknown]
  - Localised infection [Unknown]
  - Arthritis [Unknown]
  - Prolapse [Recovered/Resolved]
  - Polyp [Unknown]
  - Diverticulum intestinal [Unknown]
  - Blood urine present [Unknown]
  - Varicophlebitis [Not Recovered/Not Resolved]
  - Varicose ulceration [Unknown]
  - Foot deformity [Unknown]
  - Hyperkeratosis [Unknown]
  - Wound [Unknown]
  - Spinal disorder [Unknown]
  - Infected skin ulcer [Unknown]
  - Diarrhoea [Not Recovered/Not Resolved]
  - Pain [Unknown]
  - Product leakage [Unknown]
  - Product deposit [Unknown]
  - Treatment delayed [Unknown]

NARRATIVE: CASE EVENT DATE: 20240102
